FAERS Safety Report 14980192 (Version 2)
Quarter: 2019Q1

REPORT INFORMATION
  Report Type: Spontaneous
  Country: RO (occurrence: RO)
  Receive Date: 20180606
  Receipt Date: 20190104
  Transmission Date: 20190417
  Serious: Yes (Death, Hospitalization)
  Sender: FDA-Public Use
  Company Number: RO-MYLANLABS-2018M1037380

PATIENT
  Age: 18 Year
  Sex: Female

DRUGS (15)
  1. SIROLIMUS. [Suspect]
     Active Substance: SIROLIMUS
     Indication: PROPHYLAXIS AGAINST TRANSPLANT REJECTION
  2. TACROLIMUS. [Suspect]
     Active Substance: TACROLIMUS
     Indication: PROPHYLAXIS AGAINST TRANSPLANT REJECTION
     Dosage: 3 MILLIGRAM, QD
     Route: 048
     Dates: start: 200812, end: 200902
  3. TACROLIMUS. [Suspect]
     Active Substance: TACROLIMUS
     Dosage: 2 DOSAGE FORM, QD (1 DF, BID(2 MG IN MORNING, 1.5 MG IN NIGHT),TWICE DAILY)
     Route: 048
     Dates: start: 201009, end: 201301
  4. METHYLPREDNISOLONE. [Suspect]
     Active Substance: METHYLPREDNISOLONE
     Indication: RENAL TRANSPLANT
     Dosage: 16 MILLIGRAM, QD
     Route: 048
     Dates: start: 200802, end: 200812
  5. THYMOGLOBULIN [Suspect]
     Active Substance: LAPINE T-LYMPHOCYTE IMMUNE GLOBULIN
     Indication: PROPHYLAXIS AGAINST TRANSPLANT REJECTION
     Dosage: UNK
     Route: 042
  6. MYCOPHENOLATE MOFETIL. [Suspect]
     Active Substance: MYCOPHENOLATE MOFETIL
     Indication: RENAL TRANSPLANT
     Dosage: 1000 MILLIGRAM, QD
     Route: 048
     Dates: start: 200808, end: 200812
  7. MYCOPHENOLATE MOFETIL. [Suspect]
     Active Substance: MYCOPHENOLATE MOFETIL
     Dosage: 2 DOSAGE FORM, QD
     Route: 048
     Dates: start: 201103, end: 201203
  8. TACROLIMUS. [Suspect]
     Active Substance: TACROLIMUS
     Dosage: 5 MILLIGRAM, QD
     Route: 048
     Dates: start: 200903, end: 201009
  9. TACROLIMUS. [Suspect]
     Active Substance: TACROLIMUS
     Dosage: 3 MILLIGRAM, QD
     Route: 048
     Dates: start: 201301, end: 201502
  10. MYCOPHENOLATE MOFETIL. [Suspect]
     Active Substance: MYCOPHENOLATE MOFETIL
     Indication: PROPHYLAXIS AGAINST TRANSPLANT REJECTION
     Dosage: 2 DOSAGE FORM, BID  ((750 MG IN MORNING, 500 MG IN NIGHT),TWICE DAILY)
     Route: 048
  11. TACROLIMUS. [Suspect]
     Active Substance: TACROLIMUS
     Indication: RENAL TRANSPLANT
     Dosage: 6 MILLIGRAM, QD
     Route: 048
  12. MYCOPHENOLATE MOFETIL. [Suspect]
     Active Substance: MYCOPHENOLATE MOFETIL
     Dosage: 1000 MILLIGRAM, QD
     Route: 048
     Dates: start: 200902, end: 201009
  13. THYMOGLOBULIN [Suspect]
     Active Substance: LAPINE T-LYMPHOCYTE IMMUNE GLOBULIN
     Indication: RENAL TRANSPLANT
     Dosage: UNK UNK, QD (ONCE)
     Route: 042
     Dates: start: 200812
  14. METHYLPREDNISOLONE. [Suspect]
     Active Substance: METHYLPREDNISOLONE
     Indication: PROPHYLAXIS AGAINST TRANSPLANT REJECTION
     Dosage: 8 MILLIGRAM, QD
     Route: 048
     Dates: start: 200812, end: 200903
  15. SIROLIMUS. [Suspect]
     Active Substance: SIROLIMUS
     Indication: RENAL TRANSPLANT
     Dosage: UNK
     Route: 065

REACTIONS (20)
  - Pericarditis [Fatal]
  - Pleurisy [Fatal]
  - Lymphopenia [Fatal]
  - Abdominal pain lower [Fatal]
  - Jaundice [Fatal]
  - Dizziness [Fatal]
  - Anaemia [Fatal]
  - Epstein-Barr virus infection [Fatal]
  - Lymphadenopathy [Fatal]
  - Salivary gland mass [Fatal]
  - Stomatitis [Fatal]
  - Dysphagia [Fatal]
  - Pyrexia [Fatal]
  - Ascites [Fatal]
  - Asthenia [Fatal]
  - Leukopenia [Fatal]
  - Hodgkin^s disease lymphocyte depletion type stage unspecified [Fatal]
  - Thymus enlargement [Fatal]
  - Decreased appetite [Fatal]
  - Urinary tract infection [Recovered/Resolved]

NARRATIVE: CASE EVENT DATE: 200810
